FAERS Safety Report 24809572 (Version 1)
Quarter: 2025Q1

REPORT INFORMATION
  Report Type: Report from Study
  Country: DE (occurrence: DE)
  Receive Date: 20250106
  Receipt Date: 20250106
  Transmission Date: 20250409
  Serious: Yes (Other)
  Sender: JOHNSON AND JOHNSON
  Company Number: DE-JNJFOC-20241277851

PATIENT

DRUGS (6)
  1. REMICADE [Suspect]
     Active Substance: INFLIXIMAB
     Indication: Crohn^s disease
     Route: 041
  2. REMICADE [Suspect]
     Active Substance: INFLIXIMAB
     Indication: Colitis ulcerative
     Route: 041
  3. MERCAPTOPURINE [Concomitant]
     Active Substance: MERCAPTOPURINE
  4. AZATHIOPRINE [Concomitant]
     Active Substance: AZATHIOPRINE
  5. METHOTREXATE [Concomitant]
     Active Substance: METHOTREXATE
  6. PREDNISOLONE [Concomitant]
     Active Substance: PREDNISOLONE

REACTIONS (21)
  - Metastases to liver [Unknown]
  - Staphylococcal sepsis [Unknown]
  - Erysipelas [Unknown]
  - Hepatitis [Unknown]
  - Anaphylactic reaction [Unknown]
  - Hypokalaemia [Unknown]
  - IgA nephropathy [Unknown]
  - Drug specific antibody [Unknown]
  - Infusion related reaction [Unknown]
  - Subcutaneous abscess [Unknown]
  - Respiratory tract infection [Unknown]
  - Oesophagitis [Unknown]
  - Herpes zoster [Unknown]
  - Tonsillitis [Unknown]
  - Otitis media [Unknown]
  - Mastitis [Unknown]
  - Skin reaction [Unknown]
  - Erythema [Unknown]
  - Treatment failure [Unknown]
  - Therapeutic product effect decreased [Unknown]
  - Perioral dermatitis [Unknown]
